FAERS Safety Report 21174921 (Version 1)
Quarter: 2022Q3

REPORT INFORMATION
  Report Type: Other
  Country: US (occurrence: None)
  Receive Date: 20220805
  Receipt Date: 20220805
  Transmission Date: 20221027
  Serious: No
  Sender: FDA-Public Use
  Company Number: US-ROCHE-3004450

PATIENT
  Age: 29 Year
  Sex: Female

DRUGS (8)
  1. ENTRECTINIB [Suspect]
     Active Substance: ENTRECTINIB
     Indication: Sarcoma metastatic
     Route: 065
  2. ADRIAMYCIN [Concomitant]
     Active Substance: DOXORUBICIN HYDROCHLORIDE
  3. IFOSFAMIDE [Concomitant]
     Active Substance: IFOSFAMIDE
  4. GEMCITABINE [Concomitant]
     Active Substance: GEMCITABINE
  5. DOCETAXEL [Concomitant]
     Active Substance: DOCETAXEL
  6. LEVETIRACETAM [Concomitant]
     Active Substance: LEVETIRACETAM
  7. LACOSAMIDE [Concomitant]
     Active Substance: LACOSAMIDE
  8. LAMOTRIGINE [Concomitant]
     Active Substance: LAMOTRIGINE

REACTIONS (2)
  - Disease progression [Unknown]
  - Drug ineffective [Unknown]
